FAERS Safety Report 12722604 (Version 1)
Quarter: 2016Q3

REPORT INFORMATION
  Report Type: Spontaneous
  Country: VE (occurrence: VE)
  Receive Date: 20160907
  Receipt Date: 20160907
  Transmission Date: 20161109
  Serious: Yes (Life-Threatening, Other)
  Sender: FDA-Public Use
  Company Number: PHHY2016VE123272

PATIENT
  Age: 65 Year
  Sex: Female

DRUGS (6)
  1. MIFLONIDE [Suspect]
     Active Substance: BUDESONIDE
     Indication: EMPHYSEMA
     Dosage: 400 UG, QD
     Route: 055
     Dates: start: 20160219
  2. ONBREZ BREEZHALER [Suspect]
     Active Substance: INDACATEROL
     Indication: PULMONARY FIBROSIS
  3. CALCORT [Concomitant]
     Active Substance: DEFLAZACORT
     Indication: PRODUCT USED FOR UNKNOWN INDICATION
     Dosage: 6 MG, QD
     Route: 065
     Dates: start: 20160219
  4. MIFLONIDE [Suspect]
     Active Substance: BUDESONIDE
     Indication: PULMONARY FIBROSIS
  5. ONBREZ BREEZHALER [Suspect]
     Active Substance: INDACATEROL
     Indication: EMPHYSEMA
     Dosage: 150 UG, QD
     Route: 055
     Dates: start: 20160219
  6. SPIRIVA [Concomitant]
     Active Substance: TIOTROPIUM BROMIDE MONOHYDRATE
     Indication: EMPHYSEMA
     Dosage: 2 DF, QD
     Route: 065
     Dates: start: 20160219

REACTIONS (4)
  - Choking [Unknown]
  - Product use issue [Unknown]
  - Fear [Unknown]
  - Feeling abnormal [Unknown]

NARRATIVE: CASE EVENT DATE: 20160219
